FAERS Safety Report 12215712 (Version 2)
Quarter: 2016Q3

REPORT INFORMATION
  Report Type: Report from Study
  Country: BR (occurrence: BR)
  Receive Date: 20160328
  Receipt Date: 20160914
  Transmission Date: 20161109
  Serious: No
  Sender: FDA-Public Use
  Company Number: BR-ABBVIE-16K-020-1591020-00

PATIENT
  Age: 65 Year
  Sex: Female
  Weight: 73 kg

DRUGS (19)
  1. CONCARDIO [Concomitant]
     Active Substance: BISOPROLOL FUMARATE
     Indication: HYPERTENSION
     Route: 048
     Dates: start: 201510
  2. GINKGO BILOBA [Concomitant]
     Active Substance: GINKGO
     Indication: LABYRINTHITIS
  3. OXCARBAZEPINE. [Concomitant]
     Active Substance: OXCARBAZEPINE
     Indication: CEREBRAL DISORDER
     Route: 048
     Dates: start: 2015
  4. DORIL [Concomitant]
     Indication: PAIN
     Route: 048
  5. VERTIX [Concomitant]
     Indication: DIZZINESS
     Route: 048
  6. NIMESULIDE [Concomitant]
     Active Substance: NIMESULIDE
     Indication: ARTHRALGIA
     Route: 048
     Dates: start: 2014
  7. LOSARTAN. [Concomitant]
     Active Substance: LOSARTAN
     Route: 048
  8. PREDNISONE. [Concomitant]
     Active Substance: PREDNISONE
     Indication: ARTHRITIS
     Route: 048
  9. GARDENAL [Concomitant]
     Active Substance: PHENOBARBITAL
     Route: 048
  10. OMEGA 3 [Concomitant]
     Active Substance: OMEGA-3 FATTY ACIDS
     Indication: PRODUCT USED FOR UNKNOWN INDICATION
     Route: 048
     Dates: start: 2012
  11. GINKGO BILOBA [Concomitant]
     Active Substance: GINKGO
     Indication: HYPERTENSION
     Route: 048
     Dates: start: 1988
  12. OXCARBAZEPINE. [Concomitant]
     Active Substance: OXCARBAZEPINE
     Indication: PROPHYLAXIS
     Route: 048
  13. CONCARDIO [Concomitant]
     Active Substance: BISOPROLOL FUMARATE
     Route: 048
     Dates: start: 2016
  14. LOSARTAN. [Concomitant]
     Active Substance: LOSARTAN
     Indication: HYPERTENSION
     Route: 048
  15. HYDROCHLOROTHIAZIDE. [Concomitant]
     Active Substance: HYDROCHLOROTHIAZIDE
     Indication: HYPERTENSION
     Route: 048
  16. LABIRIN [Concomitant]
     Active Substance: BETAHISTINE
     Indication: LABYRINTHITIS
     Route: 048
  17. HUMIRA [Suspect]
     Active Substance: ADALIMUMAB
     Indication: RHEUMATOID ARTHRITIS
     Route: 058
     Dates: start: 20120712
  18. HUMIRA [Suspect]
     Active Substance: ADALIMUMAB
     Route: 058
  19. GARDENAL [Concomitant]
     Active Substance: PHENOBARBITAL
     Indication: CEREBRAL DISORDER
     Route: 048

REACTIONS (4)
  - Rib fracture [Not Recovered/Not Resolved]
  - Fall [Not Recovered/Not Resolved]
  - Pain [Unknown]
  - Rib fracture [Recovered/Resolved]

NARRATIVE: CASE EVENT DATE: 2016
